FAERS Safety Report 5548171-8 (Version None)
Quarter: 2007Q4

REPORT INFORMATION
  Report Type: 
  Country: None (occurrence: None)
  Receive Date: 20071206
  Receipt Date: 20071129
  Transmission Date: 20080405
  Serious: Yes (Hospitalization, Other)
  Sender: FDA-Public Use
  Company Number: 07H-028-0313533-00

PATIENT
  Age: 83 Year
  Sex: Female

DRUGS (2)
  1. DEXTROSE 5% [Suspect]
     Indication: ENDOMETRIAL CANCER
     Dosage: 250 ML, ONCE, INTRAVENOUS
     Route: 042
     Dates: start: 20071122, end: 20071122
  2. CARBOPLATIN [Suspect]
     Indication: ENDOMETRIAL CANCER
     Dosage: 290 MG, ONCE, INTRAVENOUS
     Route: 042
     Dates: start: 20071122, end: 20071122

REACTIONS (4)
  - BACK PAIN [None]
  - CHEST PAIN [None]
  - DISEASE PROGRESSION [None]
  - OXYGEN SATURATION DECREASED [None]
